FAERS Safety Report 7346115-X (Version None)
Quarter: 2011Q1

REPORT INFORMATION
  Report Type: 
  Country: None (occurrence: None)
  Receive Date: 20110311
  Receipt Date: 20110224
  Transmission Date: 20110831
  Serious: Yes (Other)
  Sender: FDA-Public Use
  Company Number: US-BAYER-200929397NA

PATIENT
  Sex: Female
  Weight: 67.159 kg

DRUGS (23)
  1. MAGNEVIST [Suspect]
     Indication: NUCLEAR MAGNETIC RESONANCE IMAGING
     Dates: start: 20010403, end: 20010403
  2. OMNISCAN [Suspect]
     Indication: NUCLEAR MAGNETIC RESONANCE IMAGING
  3. OPTIMARK [Suspect]
     Indication: NUCLEAR MAGNETIC RESONANCE IMAGING
  4. RENAGEL [Concomitant]
  5. ULTRAVIST 300 [Concomitant]
     Indication: COMPUTERISED TOMOGRAM ABDOMEN
     Route: 042
     Dates: start: 20071030, end: 20071030
  6. MULTIHANCE [Suspect]
     Indication: NUCLEAR MAGNETIC RESONANCE IMAGING
  7. COZAAR [Concomitant]
  8. ZEMPLAR [Concomitant]
  9. CATAPRES [Concomitant]
  10. TENORMIN [Concomitant]
  11. CORTICOSTEROIDS [Concomitant]
     Indication: PREMEDICATION
     Dates: start: 20071001, end: 20071001
  12. DIOVAN [Concomitant]
  13. NEPHROCAPS [Concomitant]
  14. ALDACTONE [Concomitant]
  15. ISOSORBIDE DINITRATE [Concomitant]
  16. HECTOROL [Concomitant]
  17. TOPROL-XL [Concomitant]
  18. NORVASC [Concomitant]
  19. VASOTEC [Concomitant]
  20. PROHANCE [Suspect]
     Indication: NUCLEAR MAGNETIC RESONANCE IMAGING
  21. MINOXIDIL [Concomitant]
  22. SENSIPAR [Concomitant]
  23. ISOVUE-128 [Concomitant]
     Indication: ANGIOGRAM
     Dates: start: 20071018, end: 20071018

REACTIONS (5)
  - PAIN [None]
  - SKIN SWELLING [None]
  - NEPHROGENIC SYSTEMIC FIBROSIS [None]
  - FIBROSIS [None]
  - SKIN TIGHTNESS [None]
